FAERS Safety Report 20889317 (Version 1)
Quarter: 2022Q2

REPORT INFORMATION
  Report Type: Spontaneous
  Country: CA (occurrence: CA)
  Receive Date: 20220530
  Receipt Date: 20220530
  Transmission Date: 20220721
  Serious: Yes (Other)
  Sender: FDA-Public Use
  Company Number: CA-AUROBINDO-AUR-APL-2022-018747

PATIENT
  Age: 56 Year
  Sex: Female

DRUGS (8)
  1. CIPROFLOXACIN [Suspect]
     Active Substance: CIPROFLOXACIN
     Indication: Antibiotic therapy
     Dosage: UNK
     Route: 048
  2. CODEINE [Suspect]
     Active Substance: CODEINE
     Indication: Product used for unknown indication
     Dosage: UNK
     Route: 065
  3. SULFACETAMIDE [Suspect]
     Active Substance: SULFACETAMIDE
     Indication: Urticaria
     Dosage: 0.1 PERCENT
     Route: 061
  4. CLINDAMYCIN [Concomitant]
     Active Substance: CLINDAMYCIN
     Indication: Product used for unknown indication
     Dosage: UNK
     Route: 065
  5. DOXYCYCLINE [Concomitant]
     Active Substance: DOXYCYCLINE
     Indication: Product used for unknown indication
     Dosage: UNK
     Route: 065
  6. ERYTHROMYCIN [Concomitant]
     Active Substance: ERYTHROMYCIN
     Indication: Urticaria
     Dosage: UNK
     Route: 048
  7. LEVAQUIN [Concomitant]
     Active Substance: LEVOFLOXACIN
     Indication: Product used for unknown indication
     Dosage: UNK
     Route: 065
  8. NASONEX [Concomitant]
     Active Substance: MOMETASONE FUROATE
     Indication: Product used for unknown indication
     Dosage: UNK UNK, ONCE A DAY
     Route: 065

REACTIONS (12)
  - Aspergillus infection [Unknown]
  - Dyspnoea [Unknown]
  - Asthma [Unknown]
  - Chest discomfort [Unknown]
  - Decreased activity [Unknown]
  - Discomfort [Unknown]
  - Eye swelling [Unknown]
  - Nasal polyps [Unknown]
  - Oropharyngeal discomfort [Unknown]
  - Pharyngeal swelling [Unknown]
  - Sleep disorder [Unknown]
  - Wheezing [Unknown]
